FAERS Safety Report 7125919-2 (Version None)
Quarter: 2010Q4

REPORT INFORMATION
  Report Type: 
  Country: None (occurrence: None)
  Receive Date: 20101129
  Receipt Date: 20101117
  Transmission Date: 20110411
  Serious: No
  Sender: FDA-Public Use
  Company Number: US-JNJFOC-20101107175

PATIENT
  Sex: Female
  Weight: 86.18 kg

DRUGS (2)
  1. FENTANYL-100 [Suspect]
     Indication: FIBROMYALGIA
     Route: 062
  2. FENTANYL-100 [Suspect]
     Indication: PAIN
     Route: 062

REACTIONS (1)
  - DRUG ADMINISTRATION ERROR [None]
